FAERS Safety Report 10568950 (Version 1)
Quarter: 2014Q4

REPORT INFORMATION
  Report Type: Spontaneous
  Country: CN (occurrence: CN)
  Receive Date: 20141106
  Receipt Date: 20141106
  Transmission Date: 20150529
  Serious: Yes (Other)
  Sender: FDA-Public Use
  Company Number: CN-OTSUKA-JP-2014-18633

PATIENT

DRUGS (3)
  1. PLETAAL [Suspect]
     Active Substance: CILOSTAZOL
     Indication: HYPERTENSION
  2. PLETAAL [Suspect]
     Active Substance: CILOSTAZOL
     Indication: SPINAL PAIN
     Dosage: 50 MG MILLIGRAM(S), BID
     Route: 048
     Dates: start: 20140304, end: 20140305
  3. PLETAAL [Suspect]
     Active Substance: CILOSTAZOL
     Indication: DIABETES MELLITUS

REACTIONS (2)
  - Visual impairment [Recovering/Resolving]
  - Quadriplegia [Recovering/Resolving]

NARRATIVE: CASE EVENT DATE: 20140305
